FAERS Safety Report 23299421 (Version 1)
Quarter: 2023Q4

REPORT INFORMATION
  Report Type: Report from Study
  Country: US (occurrence: US)
  Receive Date: 20231215
  Receipt Date: 20231215
  Transmission Date: 20240110
  Serious: No
  Sender: FDA-Public Use
  Company Number: US-ACADIA PHARMACEUTICALS INC.-ACA-2023-TRF-005376

PATIENT
  Sex: Female

DRUGS (1)
  1. DAYBUE [Suspect]
     Active Substance: TROFINETIDE
     Dosage: 5 MILLILITER
     Route: 065

REACTIONS (2)
  - Constipation [Unknown]
  - Faeces soft [Unknown]
